FAERS Safety Report 5078650-1 (Version None)
Quarter: 2006Q3

REPORT INFORMATION
  Report Type: 
  Country: None (occurrence: None)
  Receive Date: 20060810
  Receipt Date: 20060810
  Transmission Date: 20061208
  Serious: Yes (Other)
  Sender: FDA-Public Use
  Company Number: None

PATIENT
  Sex: Male
  Weight: 84 kg

DRUGS (7)
  1. PEGASYS [Suspect]
     Indication: HEPATITIS C
     Dosage: 180 MCG WEEKLY SQ
     Route: 058
     Dates: start: 20051101, end: 20060809
  2. SYNTHROID [Concomitant]
  3. M.V.I. [Concomitant]
  4. MOTRIN [Concomitant]
  5. DOCUSATE [Concomitant]
  6. RIBAVIRIN [Concomitant]
  7. SUBOXONE [Concomitant]

REACTIONS (5)
  - BLOOD THYROID STIMULATING HORMONE DECREASED [None]
  - BLOOD THYROID STIMULATING HORMONE INCREASED [None]
  - THYROID DISORDER [None]
  - THYROIDITIS [None]
  - TREATMENT NONCOMPLIANCE [None]
